FAERS Safety Report 23182086 (Version 8)
Quarter: 2024Q1

REPORT INFORMATION
  Report Type: Spontaneous
  Country: US (occurrence: US)
  Receive Date: 20231114
  Receipt Date: 20240117
  Transmission Date: 20240410
  Serious: No
  Sender: FDA-Public Use
  Company Number: US-PFIZER INC-202200625386

PATIENT
  Age: 68 Year
  Sex: Female

DRUGS (4)
  1. PREMARIN [Suspect]
     Active Substance: ESTROGENS, CONJUGATED
     Indication: Urinary tract infection
     Dosage: 0.5 G, 3XWEEKLY
  2. PREMARIN [Suspect]
     Active Substance: ESTROGENS, CONJUGATED
     Indication: Atrophic vulvovaginitis
     Dosage: (AT BEDTIME)
     Route: 067
     Dates: start: 20220421, end: 20221003
  3. PREMARIN [Suspect]
     Active Substance: ESTROGENS, CONJUGATED
     Dosage: 0.5 G, 4 TIMES PER WEEK AT BEDTIME
     Route: 067
     Dates: start: 20221003
  4. PREMARIN [Suspect]
     Active Substance: ESTROGENS, CONJUGATED
     Dosage: (PEA SIZED AMOUNT) INTO VAGINA, TWICE WEEKLY AT NIGHT
     Route: 067
     Dates: start: 20231116

REACTIONS (5)
  - Viral upper respiratory tract infection [Unknown]
  - Wrong technique in product usage process [Unknown]
  - Product prescribing error [Unknown]
  - Contraindicated product administered [Unknown]
  - Off label use [Unknown]
